FAERS Safety Report 7394922-X (Version None)
Quarter: 2011Q2

REPORT INFORMATION
  Report Type: 
  Country: None (occurrence: None)
  Receive Date: 20110405
  Receipt Date: 20110330
  Transmission Date: 20111010
  Serious: Yes (Hospitalization)
  Sender: FDA-Public Use
  Company Number: B0710178A

PATIENT
  Age: 13 Year
  Sex: Male

DRUGS (1)
  1. VALTREX [Suspect]
     Route: 048

REACTIONS (1)
  - OCULOMUCOCUTANEOUS SYNDROME [None]
